FAERS Safety Report 9369540 (Version 2)
Quarter: 2013Q3

REPORT INFORMATION
  Report Type: Spontaneous
  Country: US (occurrence: US)
  Receive Date: 20130626
  Receipt Date: 20130724
  Transmission Date: 20140515
  Serious: No
  Sender: FDA-Public Use
  Company Number: US-PFIZER INC-2013187324

PATIENT
  Sex: Female
  Weight: 63.49 kg

DRUGS (1)
  1. COLESTID [Suspect]
     Indication: POST CHOLECYSTECTOMY SYNDROME
     Dosage: 2 G, DAILY
     Route: 048

REACTIONS (2)
  - Drug ineffective for unapproved indication [Unknown]
  - Flatulence [Not Recovered/Not Resolved]
